FAERS Safety Report 5060357-8 (Version None)
Quarter: 2006Q3

REPORT INFORMATION
  Report Type: 
  Country: None (occurrence: None)
  Receive Date: 20060720
  Receipt Date: 20060707
  Transmission Date: 20061208
  Serious: Yes (Hospitalization, Congenital Anomaly)
  Sender: FDA-Public Use
  Company Number: 6024134

PATIENT
  Sex: Female

DRUGS (1)
  1. METHIMAZOLE [Suspect]
     Dosage: 20 MG (20 MG, 1 IN 1 D)
     Route: 064

REACTIONS (7)
  - ABNORMAL PALMAR/PLANTAR CREASES [None]
  - CHOANAL ATRESIA [None]
  - CONGENITAL NOSE MALFORMATION [None]
  - DRUG EXPOSURE DURING PREGNANCY [None]
  - INTUBATION COMPLICATION [None]
  - MICROGNATHIA [None]
  - SKULL MALFORMATION [None]
